FAERS Safety Report 22683825 (Version 4)
Quarter: 2023Q4

REPORT INFORMATION
  Report Type: Report from Study
  Country: GB (occurrence: GB)
  Receive Date: 20230708
  Receipt Date: 20231212
  Transmission Date: 20240109
  Serious: Yes (Other)
  Sender: FDA-Public Use
  Company Number: GB-002147023-NVSC2023GB097327

PATIENT
  Age: 62 Year
  Sex: Male

DRUGS (1)
  1. SIPONIMOD [Suspect]
     Active Substance: SIPONIMOD
     Indication: Multiple sclerosis
     Dosage: UNK
     Route: 048
     Dates: start: 20230424

REACTIONS (8)
  - Blindness unilateral [Unknown]
  - Hypersomnia [Unknown]
  - Dizziness [Recovered/Resolved]
  - Nausea [Unknown]
  - Blood pressure increased [Unknown]
  - Liver function test increased [Unknown]
  - Dizziness [Unknown]
  - Extra dose administered [Unknown]

NARRATIVE: CASE EVENT DATE: 20230425
